FAERS Safety Report 21596613 (Version 1)
Quarter: 2022Q4

REPORT INFORMATION
  Report Type: Report from Study
  Country: BR (occurrence: BR)
  Receive Date: 20221115
  Receipt Date: 20221115
  Transmission Date: 20230112
  Serious: Yes (Other)
  Sender: FDA-Public Use
  Company Number: BR-002147023-NVSC2022BR247433

PATIENT
  Sex: Male

DRUGS (3)
  1. RIBOCICLIB [Suspect]
     Active Substance: RIBOCICLIB
     Indication: Product used for unknown indication
     Dosage: UNK (START DATE: 6 DAYS AGO) (21 DAYS AND PAUSE 7 DAYS)
     Route: 065
  2. RIBOCICLIB [Suspect]
     Active Substance: RIBOCICLIB
     Dosage: UNK
     Route: 065
  3. LETROZOLE [Suspect]
     Active Substance: LETROZOLE
     Indication: Product used for unknown indication
     Dosage: UNK
     Route: 065

REACTIONS (18)
  - Haemorrhage [Unknown]
  - Illness [Unknown]
  - Tremor [Unknown]
  - Acne [Recovering/Resolving]
  - Scab [Unknown]
  - Pain [Unknown]
  - Neck pain [Unknown]
  - Motion sickness [Recovered/Resolved]
  - Blister [Unknown]
  - Lip blister [Unknown]
  - Oral mucosal blistering [Unknown]
  - Scrotal ulcer [Unknown]
  - Dry skin [Unknown]
  - Stomatitis [Unknown]
  - Pyrexia [Unknown]
  - Vomiting [Recovered/Resolved]
  - Nausea [Not Recovered/Not Resolved]
  - Vomiting [Unknown]
